FAERS Safety Report 9741266 (Version 1)
Quarter: 2013Q4

REPORT INFORMATION
  Report Type: Spontaneous
  Country: US (occurrence: US)
  Receive Date: 20131209
  Receipt Date: 20131209
  Transmission Date: 20140711
  Serious: No
  Sender: FDA-Public Use
  Company Number: US-BIOGENIDEC-2013BI100620

PATIENT
  Sex: Female

DRUGS (4)
  1. TECFIDERA [Suspect]
     Indication: PRODUCT USED FOR UNKNOWN INDICATION
     Route: 048
  2. ATORVASTATIN [Concomitant]
  3. MYRBETRIQ [Concomitant]
  4. VITAMIN D [Concomitant]

REACTIONS (3)
  - Depression [Unknown]
  - Gait disturbance [Unknown]
  - White blood cell count decreased [Unknown]
